FAERS Safety Report 14603809 (Version 3)
Quarter: 2018Q2

REPORT INFORMATION
  Report Type: Spontaneous
  Country: JP (occurrence: JP)
  Receive Date: 20180306
  Receipt Date: 20180412
  Transmission Date: 20180711
  Serious: Yes (Other)
  Sender: FDA-Public Use
  Company Number: JP-JNJFOC-20180303860

PATIENT
  Age: 50 Year
  Sex: Male
  Weight: 63 kg

DRUGS (10)
  1. STELARA [Suspect]
     Active Substance: USTEKINUMAB
     Indication: CROHN^S DISEASE
     Route: 058
     Dates: start: 20170803
  2. POLAPREZINC [Concomitant]
     Active Substance: POLAPREZINC
     Route: 048
  3. STELARA [Suspect]
     Active Substance: USTEKINUMAB
     Indication: CROHN^S DISEASE
     Dosage: INTERAVENOUS DRIP
     Route: 058
     Dates: start: 20170605, end: 20170605
  4. TAKECAB [Concomitant]
     Active Substance: VONOPRAZAN FUMURATE
     Route: 048
  5. XYZAL [Concomitant]
     Active Substance: LEVOCETIRIZINE DIHYDROCHLORIDE
     Route: 048
  6. URSO [Concomitant]
     Active Substance: URSODIOL
     Route: 048
  7. PYRIDOXAL [Concomitant]
     Active Substance: PYRIDOXAL
     Route: 065
     Dates: start: 20141008
  8. ISONIAZID. [Concomitant]
     Active Substance: ISONIAZID
     Indication: TUBERCULOSIS
     Route: 048
     Dates: start: 20141008
  9. PENTASA [Concomitant]
     Active Substance: MESALAMINE
     Route: 065
  10. MIYA-BM [Concomitant]
     Active Substance: CLOSTRIDIUM BUTYRICUM SPORES STRAIN M-55
     Route: 048

REACTIONS (1)
  - Pneumonia [Recovering/Resolving]

NARRATIVE: CASE EVENT DATE: 20180219
